FAERS Safety Report 17415030 (Version 7)
Quarter: 2021Q1

REPORT INFORMATION
  Report Type: Report from Study
  Country: US (occurrence: US)
  Receive Date: 20200213
  Receipt Date: 20210319
  Transmission Date: 20210419
  Serious: Yes (Other)
  Sender: FDA-Public Use
  Company Number: NVSC2020US037200

PATIENT
  Sex: Male

DRUGS (1)
  1. COSENTYX [Suspect]
     Active Substance: SECUKINUMAB
     Indication: PRODUCT USED FOR UNKNOWN INDICATION
     Dosage: UNK
     Route: 065

REACTIONS (8)
  - Stress [Unknown]
  - Nail hypertrophy [Unknown]
  - Psoriasis [Unknown]
  - Hernia [Unknown]
  - Macule [Unknown]
  - Alopecia [Unknown]
  - Rash [Unknown]
  - Colon cancer [Unknown]
